FAERS Safety Report 4529657-1 (Version None)
Quarter: 2004Q4

REPORT INFORMATION
  Report Type: 
  Country: None (occurrence: None)
  Receive Date: 20041216
  Receipt Date: 20041207
  Transmission Date: 20050328
  Serious: Yes (Life-Threatening, Hospitalization, Disabling)
  Sender: FDA-Public Use
  Company Number: US-MERCK-0412USA00880

PATIENT

DRUGS (2)
  1. CANCIDAS [Suspect]
     Indication: CANDIDIASIS
     Route: 065
  2. FLUCONAZOLE [Concomitant]
     Route: 065

REACTIONS (2)
  - FUNGAEMIA [None]
  - THERAPY NON-RESPONDER [None]
